FAERS Safety Report 8275655-4 (Version None)
Quarter: 2012Q2

REPORT INFORMATION
  Report Type: 
  Country: None (occurrence: None)
  Receive Date: 20120412
  Receipt Date: 20120403
  Transmission Date: 20120825
  Serious: No
  Sender: FDA-Public Use
  Company Number: US-BIOGENIDEC-2012BI011901

PATIENT
  Sex: Female

DRUGS (1)
  1. TYSABRI [Suspect]
     Indication: MULTIPLE SCLEROSIS
     Route: 042
     Dates: start: 20120216

REACTIONS (6)
  - COUGH [None]
  - FATIGUE [None]
  - DRUG EFFECT DECREASED [None]
  - RESPIRATORY TRACT CONGESTION [None]
  - INSOMNIA [None]
  - PERONEAL NERVE PALSY [None]
